FAERS Safety Report 7108504-8 (Version None)
Quarter: 2010Q4

REPORT INFORMATION
  Report Type: 
  Country: None (occurrence: None)
  Receive Date: 20101117
  Receipt Date: 20100819
  Transmission Date: 20110411
  Serious: No
  Sender: FDA-Public Use
  Company Number: A0871681A

PATIENT
  Age: 81 Year
  Sex: Male

DRUGS (4)
  1. VOTRIENT [Suspect]
     Dosage: 4TAB PER DAY
     Route: 048
     Dates: start: 20100603, end: 20100810
  2. ZOCOR [Concomitant]
  3. CARDIZEM [Concomitant]
  4. COUMADIN [Concomitant]

REACTIONS (9)
  - ABDOMINAL PAIN [None]
  - CONSTIPATION [None]
  - DECREASED APPETITE [None]
  - DYSGEUSIA [None]
  - EATING DISORDER [None]
  - FAECES HARD [None]
  - FATIGUE [None]
  - PROTEIN URINE PRESENT [None]
  - WEIGHT DECREASED [None]
